FAERS Safety Report 15332293 (Version 2)
Quarter: 2018Q4

REPORT INFORMATION
  Report Type: Spontaneous
  Country: US (occurrence: US)
  Receive Date: 20180829
  Receipt Date: 20181012
  Transmission Date: 20190204
  Serious: Yes (Hospitalization, Other)
  Sender: FDA-Public Use
  Company Number: US-AMGEN-USASP2018117769

PATIENT
  Age: 64 Year
  Sex: Male
  Weight: 101.13 kg

DRUGS (2)
  1. ENBREL [Suspect]
     Active Substance: ETANERCEPT
     Indication: ANKYLOSING SPONDYLITIS
     Dosage: 50 MG, QWK
     Route: 058
     Dates: start: 2014
  2. ENBREL [Suspect]
     Active Substance: ETANERCEPT
     Indication: SPONDYLOARTHROPATHY

REACTIONS (4)
  - Viral infection [Unknown]
  - Chest injury [Unknown]
  - Pericardial effusion [Recovering/Resolving]
  - Cough [Unknown]

NARRATIVE: CASE EVENT DATE: 201808
